FAERS Safety Report 16550455 (Version 1)
Quarter: 2019Q3

REPORT INFORMATION
  Report Type: Spontaneous
  Country: US (occurrence: US)
  Receive Date: 20190709
  Receipt Date: 20190709
  Transmission Date: 20191004
  Serious: Yes (Life-Threatening, Hospitalization, Disabling, Other)
  Sender: FDA-Public Use
  Company Number: None

PATIENT
  Age: 86 Year
  Sex: Female
  Weight: 46.8 kg

DRUGS (13)
  1. METOPROLOL. [Concomitant]
     Active Substance: METOPROLOL
  2. DUREZOL [Concomitant]
     Active Substance: DIFLUPREDNATE
  3. HALDOL [Suspect]
     Active Substance: HALOPERIDOL
     Indication: DELIRIUM
     Dates: start: 20190621, end: 20190621
  4. ATROPINE. [Concomitant]
     Active Substance: ATROPINE
  5. ZOSYN [Concomitant]
     Active Substance: PIPERACILLIN SODIUM\TAZOBACTAM SODIUM
  6. PROBIOTIC [Concomitant]
     Active Substance: PROBIOTICS NOS
  7. LATANAPROST [Concomitant]
     Active Substance: LATANOPROST
  8. SIMETHICONE (DIMETHICONE) [Concomitant]
     Active Substance: DIMETHICONE
  9. CELEBREX [Concomitant]
     Active Substance: CELECOXIB
  10. CEFEPIME [Concomitant]
     Active Substance: CEFEPIME HYDROCHLORIDE
  11. SYNTHROID [Concomitant]
     Active Substance: LEVOTHYROXINE SODIUM
  12. TOBRAMYCIN. [Concomitant]
     Active Substance: TOBRAMYCIN
  13. PEPCID [Concomitant]
     Active Substance: FAMOTIDINE

REACTIONS (6)
  - Enterobacter infection [None]
  - Sepsis [None]
  - Tremor [None]
  - Coma [None]
  - Pathogen resistance [None]
  - Hypertension [None]

NARRATIVE: CASE EVENT DATE: 20190621
